FAERS Safety Report 19495288 (Version 1)
Quarter: 2021Q3

REPORT INFORMATION
  Report Type: Report from Study
  Country: US (occurrence: US)
  Receive Date: 20210706
  Receipt Date: 20210706
  Transmission Date: 20211014
  Serious: Yes (Hospitalization)
  Sender: FDA-Public Use
  Company Number: US-BIOVITRUM-DOV-000773

PATIENT
  Age: 55 Year
  Sex: Male
  Weight: 139.68 kg

DRUGS (2)
  1. DOPTELET [Suspect]
     Active Substance: AVATROMBOPAG MALEATE
     Indication: THROMBOCYTOPENIA
     Dosage: 20 MILLIGRAM, QD
     Route: 048
     Dates: start: 20200504
  2. DOPTELET [Suspect]
     Active Substance: AVATROMBOPAG MALEATE
     Indication: LIVER DISORDER
     Dosage: 20 MILLIGRAM
     Route: 048
     Dates: start: 20210127

REACTIONS (4)
  - Back injury [Not Recovered/Not Resolved]
  - Fall [Unknown]
  - Therapeutic response unexpected [Unknown]
  - Weight decreased [Unknown]

NARRATIVE: CASE EVENT DATE: 20201104
